FAERS Safety Report 11229365 (Version 2)
Quarter: 2015Q3

REPORT INFORMATION
  Report Type: Report from Study
  Country: BR (occurrence: BR)
  Receive Date: 20150630
  Receipt Date: 20150727
  Transmission Date: 20151125
  Serious: Yes (Other)
  Sender: FDA-Public Use
  Company Number: PHHY2015BR078112

PATIENT
  Age: 21 Year
  Sex: Female
  Weight: 60 kg

DRUGS (1)
  1. SANDOSTATIN [Suspect]
     Active Substance: OCTREOTIDE ACETATE
     Indication: ACROMEGALY
     Dosage: UNK MG, QMO (REPORTED AS EVERY 28 DAYS)
     Route: 065
     Dates: start: 2013, end: 20150624

REACTIONS (2)
  - Cellulitis [Recovered/Resolved]
  - Infection [Recovered/Resolved]
